FAERS Safety Report 20534196 (Version 1)
Quarter: 2022Q1

REPORT INFORMATION
  Report Type: Report from Study
  Country: US (occurrence: US)
  Receive Date: 20220301
  Receipt Date: 20220301
  Transmission Date: 20220423
  Serious: Yes (Death)
  Sender: FDA-Public Use
  Company Number: US-SUN PHARMACEUTICAL INDUSTRIES LTD-2022R1-327418

PATIENT
  Age: 69 Year
  Sex: Male

DRUGS (2)
  1. ISOSORBIDE [Suspect]
     Active Substance: ISOSORBIDE
     Indication: Cardiomyopathy
     Dosage: 10 MILLIGRAM, TID
     Route: 065
  2. ALDACTAZIDE [Suspect]
     Active Substance: HYDROCHLOROTHIAZIDE\SPIRONOLACTONE
     Indication: Cardiomyopathy
     Dosage: 25 MG/25 MG QD, QD
     Route: 065

REACTIONS (1)
  - Condition aggravated [Fatal]
